FAERS Safety Report 5208992-8 (Version None)
Quarter: 2007Q1

REPORT INFORMATION
  Report Type: 
  Country: None (occurrence: None)
  Receive Date: 20070116
  Receipt Date: 20070108
  Transmission Date: 20070707
  Serious: Yes (Hospitalization)
  Sender: FDA-Public Use
  Company Number: FR-GLAXOSMITHKLINE-B0453958A

PATIENT
  Age: 20 Month
  Sex: Male
  Weight: 13 kg

DRUGS (1)
  1. VENTOLIN [Suspect]
     Indication: BRONCHIOLITIS
     Dosage: .16MG SINGLE DOSE
     Route: 042
     Dates: start: 20061220, end: 20061220

REACTIONS (3)
  - HYPERTENSION [None]
  - INCORRECT ROUTE OF DRUG ADMINISTRATION [None]
  - TACHYCARDIA [None]
